FAERS Safety Report 9370920 (Version 3)
Quarter: 2013Q3

REPORT INFORMATION
  Report Type: Spontaneous
  Country: US (occurrence: US)
  Receive Date: 20130627
  Receipt Date: 20130919
  Transmission Date: 20140515
  Serious: Yes (Other)
  Sender: FDA-Public Use
  Company Number: US-ROCHE-1241363

PATIENT
  Age: 78 Year
  Sex: Female
  Weight: 84.44 kg

DRUGS (7)
  1. LUCENTIS [Suspect]
     Indication: PRODUCT USED FOR UNKNOWN INDICATION
     Dosage: 0.5 MG INTRAOCULAR INJECTION IN BOTH EYES
     Route: 050
     Dates: start: 20130619
  2. LEVOTHYROXINE [Concomitant]
     Route: 065
  3. METOPROLOL TARTRATE [Concomitant]
     Indication: PALPITATIONS
     Route: 065
  4. IRBESARTAN [Concomitant]
     Indication: BLOOD PRESSURE
     Route: 065
  5. ATORVASTATIN [Concomitant]
     Indication: BLOOD CHOLESTEROL INCREASED
     Route: 065
  6. MACRODANTIN [Concomitant]
     Route: 065
  7. ENABLEX [Concomitant]

REACTIONS (8)
  - Non-infectious endophthalmitis [Unknown]
  - Vitreous disorder [Recovering/Resolving]
  - Vitreous floaters [Recovering/Resolving]
  - Visual acuity reduced [Recovering/Resolving]
  - Vision blurred [Unknown]
  - Vitreous floaters [Not Recovered/Not Resolved]
  - Pain [Unknown]
  - Product quality issue [Unknown]
